FAERS Safety Report 9194761 (Version 1)
Quarter: 2013Q1

REPORT INFORMATION
  Report Type: Spontaneous
  Country: US (occurrence: US)
  Receive Date: 20130328
  Receipt Date: 20130328
  Transmission Date: 20140127
  Serious: No
  Sender: FDA-Public Use
  Company Number: US-ALLERGAN-1209867US

PATIENT
  Age: 42 Year
  Sex: Female

DRUGS (3)
  1. LATISSE 0.03% [Suspect]
     Indication: GROWTH OF EYELASHES
     Dosage: 2 GTT, QHS
     Route: 061
     Dates: start: 20120715
  2. MASCARA [Concomitant]
  3. INTENSIVE EYE CREAM [Concomitant]
     Indication: PRODUCT USED FOR UNKNOWN INDICATION

REACTIONS (9)
  - Skin exfoliation [Recovering/Resolving]
  - Skin exfoliation [Recovering/Resolving]
  - Dermatitis [Recovering/Resolving]
  - Scab [Recovering/Resolving]
  - Skin exfoliation [Recovering/Resolving]
  - Dermatitis [Unknown]
  - Skin discolouration [Recovering/Resolving]
  - Blepharal pigmentation [Unknown]
  - Eyelids pruritus [Unknown]
